FAERS Safety Report 10705691 (Version 2)
Quarter: 2015Q1

REPORT INFORMATION
  Report Type: Report from Study
  Country: US (occurrence: US)
  Receive Date: 20150112
  Receipt Date: 20150112
  Transmission Date: 20150721
  Serious: Yes (Hospitalization)
  Sender: FDA-Public Use
  Company Number: US-INCYTE CORPORATION-2014IN003158

PATIENT
  Age: 61 Year
  Sex: Male
  Weight: 63.95 kg

DRUGS (21)
  1. ENALAPRIL [Concomitant]
     Active Substance: ENALAPRIL
     Dosage: 2.5 MG, QD
  2. FENOFIBRATE. [Concomitant]
     Active Substance: FENOFIBRATE
     Dosage: 48 MG, QD
  3. VORICONAZOLE. [Concomitant]
     Active Substance: VORICONAZOLE
     Dosage: 250 MG, BID
  4. CHLORHEXIDINE [Concomitant]
     Active Substance: CHLORHEXIDINE
     Dosage: 0.12% MOUTHWASH; THREE TIMES DAILY
  5. MIRALAX [Concomitant]
     Active Substance: POLYETHYLENE GLYCOL 3350
     Dosage: 17 G DAILY
  6. INCB018424 (RUXOLITINIB) + DECITABINE [Suspect]
     Active Substance: DECITABINE\RUXOLITINIB
     Indication: ACUTE MYELOID LEUKAEMIA
     Dosage: 10 MG, BID
     Route: 048
     Dates: start: 20140922, end: 20141220
  7. INCB018424 (RUXOLITINIB) + DECITABINE [Suspect]
     Active Substance: DECITABINE\RUXOLITINIB
     Dosage: 20 MG/M2 X 5 DAYS
     Route: 042
     Dates: start: 20140929, end: 20141003
  8. TYLENOL [Concomitant]
     Active Substance: ACETAMINOPHEN
     Dosage: 650 MG, PRN (DID NOT TAKE ON 03DEC2014 PM AND 04DEC2014 AM)
  9. VALACYCLOVIR HCL PHARMA PAC [Concomitant]
     Active Substance: VALACYCLOVIR HYDROCHLORIDE
     Dosage: 500 MG, UNK
  10. FLUCONAZOLE. [Concomitant]
     Active Substance: FLUCONAZOLE
     Dosage: 100 MG, QD
  11. VALACYCLOVIR HYDROCHLORIDE. [Concomitant]
     Active Substance: VALACYCLOVIR HYDROCHLORIDE
     Dosage: 500 MG, BID
  12. GABAPENTIN. [Concomitant]
     Active Substance: GABAPENTIN
     Dosage: 300 MG, BID
  13. OMEPRAZOLE. [Concomitant]
     Active Substance: OMEPRAZOLE
     Dosage: 40 MG, QD
  14. DOCUSATE [Concomitant]
     Active Substance: DOCUSATE
     Dosage: 100 MG, TID
  15. SENNOSIDE                          /00571901/ [Concomitant]
     Active Substance: SENNOSIDES A AND B
     Dosage: 17.2 MG, QD
  16. INCB018424 (RUXOLITINIB) + DECITABINE [Suspect]
     Active Substance: DECITABINE\RUXOLITINIB
     Dosage: 20 MG/M2 X 5 DAYS
     Route: 042
     Dates: start: 20141027, end: 20141031
  17. INCB018424 (RUXOLITINIB) + DECITABINE [Suspect]
     Active Substance: DECITABINE\RUXOLITINIB
     Dosage: 20 MG/M2 X 5 DAYS
     Route: 042
     Dates: start: 20141124, end: 20141128
  18. METFORMIN [Concomitant]
     Active Substance: METFORMIN HYDROCHLORIDE
     Dosage: 500 MG, BID
  19. PERCOCET [Concomitant]
     Active Substance: ACETAMINOPHEN\OXYCODONE HYDROCHLORIDE
     Dosage: ONE TABLET EVERY FOUR HOURS AS NEEDED
  20. PREPARATION H                      /00611001/ [Concomitant]
     Dosage: 2 TIMES DAILY
  21. LEVOFLOXACIN. [Concomitant]
     Active Substance: LEVOFLOXACIN
     Dosage: 500 MG, QD

REACTIONS (12)
  - Pneumonia fungal [Unknown]
  - Periodontitis [None]
  - Cardiac arrest [None]
  - Acute myeloid leukaemia [None]
  - Anal fissure [None]
  - Respiratory failure [None]
  - Haemoglobin decreased [None]
  - Pleural effusion [None]
  - Febrile neutropenia [Unknown]
  - Platelet count decreased [None]
  - Multi-organ disorder [None]
  - Renal impairment [None]

NARRATIVE: CASE EVENT DATE: 20141020
